FAERS Safety Report 9513444 (Version 1)
Quarter: 2013Q3

REPORT INFORMATION
  Report Type: Spontaneous
  Country: IT (occurrence: IT)
  Receive Date: 20130910
  Receipt Date: 20130910
  Transmission Date: 20140515
  Serious: Yes (Hospitalization)
  Sender: FDA-Public Use
  Company Number: IT-TEVA-430603ISR

PATIENT
  Age: 88 Year
  Sex: Female

DRUGS (7)
  1. LEVOFLOXACINA TEVA 250MG [Suspect]
     Indication: URINARY TRACT INFECTION
     Dosage: 2 DOSAGE FORMS DAILY;
     Route: 048
     Dates: start: 20130814, end: 20130818
  2. TRIATEC 2.5MG [Suspect]
     Indication: HYPERTENSION
     Dosage: 1 DOSAGE FORMS DAILY;
     Route: 048
     Dates: start: 20130814, end: 20130818
  3. BISOPROLOLO EMIFUMARATO [Concomitant]
  4. ALLOPURINOLO [Concomitant]
  5. LASIX 25MG [Concomitant]
     Dosage: 1 DOSAGE FORMS DAILY;
     Route: 048
  6. ESOPRAL [Concomitant]
  7. CARDIOASPIRIN 100MG [Concomitant]
     Dosage: GASTRO-RESISTANT TABLETS

REACTIONS (1)
  - Renal failure chronic [Recovering/Resolving]
